FAERS Safety Report 5066243-1 (Version None)
Quarter: 2006Q3

REPORT INFORMATION
  Report Type: 
  Country: None (occurrence: None)
  Receive Date: 20060801
  Receipt Date: 20030903
  Transmission Date: 20061208
  Serious: Yes (Life-Threatening, Hospitalization)
  Sender: FDA-Public Use
  Company Number: JP-BRISTOL-MYERS SQUIBB COMPANY-12374377

PATIENT
  Age: 47 Year
  Sex: Male

DRUGS (8)
  1. ZERIT [Suspect]
     Indication: HIV INFECTION
     Dosage: INTERRUPTED FROM 04-JUL-2004 TO 05-JUL2004
     Route: 048
     Dates: start: 20010906, end: 20050201
  2. VIDEX EC [Suspect]
     Indication: HIV INFECTION
     Route: 048
     Dates: start: 20010906, end: 20050201
  3. STOCRIN [Suspect]
     Indication: HIV INFECTION
     Route: 048
     Dates: start: 20050411
  4. VIRACEPT [Suspect]
     Indication: HIV INFECTION
     Route: 048
     Dates: start: 20010906, end: 20041206
  5. EPIVIR [Suspect]
     Indication: HIV INFECTION
     Route: 048
     Dates: start: 20050401
  6. VIREAD [Suspect]
     Indication: HIV INFECTION
     Route: 048
     Dates: start: 20050401
  7. MONILAC [Concomitant]
     Route: 048
     Dates: start: 20030401, end: 20050424
  8. RECOMBINATE [Concomitant]
     Route: 042
     Dates: start: 20020401

REACTIONS (4)
  - CEREBELLAR HAEMORRHAGE [None]
  - HEPATIC ENCEPHALOPATHY [None]
  - HYPERTENSION [None]
  - LUMBAR VERTEBRAL FRACTURE [None]
